FAERS Safety Report 6750986-5 (Version None)
Quarter: 2010Q2

REPORT INFORMATION
  Report Type: 
  Country: None (occurrence: None)
  Receive Date: 20100526
  Receipt Date: 20100511
  Transmission Date: 20101027
  Serious: Yes (Hospitalization)
  Sender: FDA-Public Use
  Company Number: 2009BI014932

PATIENT
  Age: 79 Year
  Sex: Male

DRUGS (13)
  1. ZEVALIN [Suspect]
     Indication: MANTLE CELL LYMPHOMA STAGE I
     Dosage: 974 MBQ; 1X ;IV
     Route: 042
     Dates: start: 20090120, end: 20090127
  2. RITUXIMAB [Concomitant]
  3. ANALGESICS [Concomitant]
  4. ANTIPYRETICS [Concomitant]
  5. ANTIHISTAMINES [Concomitant]
  6. ALLEGRA [Concomitant]
  7. DOXAZOSIN MESYLATE [Concomitant]
  8. CONIEL [Concomitant]
  9. MAGLAX [Concomitant]
  10. URINORM [Concomitant]
  11. VALTREX [Concomitant]
  12. ......................... [Concomitant]
  13. CLADRIBINE [Concomitant]

REACTIONS (5)
  - BLOOD UREA INCREASED [None]
  - C-REACTIVE PROTEIN INCREASED [None]
  - NEUTROPHIL COUNT DECREASED [None]
  - PANCYTOPENIA [None]
  - PLATELET COUNT DECREASED [None]
